FAERS Safety Report 17677582 (Version 1)
Quarter: 2020Q2

REPORT INFORMATION
  Report Type: Spontaneous
  Country: US (occurrence: US)
  Receive Date: 20200416
  Receipt Date: 20200416
  Transmission Date: 20200714
  Serious: No
  Sender: FDA-Public Use
  Company Number: US-TEVA-2020-US-1221330

PATIENT
  Age: 12 Year
  Sex: Male

DRUGS (2)
  1. METHYLPHENIDATE HYDROCHLORIDE TEVA [Suspect]
     Active Substance: METHYLPHENIDATE HYDROCHLORIDE
     Indication: ATTENTION DEFICIT HYPERACTIVITY DISORDER
     Dosage: EXTENDED RELEASE TABLET
     Route: 065
  2. METHYLPHENIDATE HYDROCHLORIDE TEVA [Suspect]
     Active Substance: METHYLPHENIDATE HYDROCHLORIDE
     Dosage: EXTENDED RELEASE TABLET
     Route: 065

REACTIONS (3)
  - Product substitution issue [Unknown]
  - Anger [Unknown]
  - Agitation [Unknown]
